FAERS Safety Report 8858847 (Version 1)
Quarter: 2012Q4

REPORT INFORMATION
  Report Type: 
  Country: US (occurrence: US)
  Receive Date: 20121024
  Receipt Date: 20121024
  Transmission Date: 20130627
  Serious: No
  Sender: FDA-Public Use
  Company Number: US-BAYER-2012-102782

PATIENT
  Sex: Female

DRUGS (2)
  1. NEXAVAR [Suspect]
     Indication: ACUTE MYELOID LEUKEMIA
  2. HYDROXYUREA [Concomitant]
     Indication: WHITE BLOOD CELL INCREASED

REACTIONS (1)
  - White blood cell count decreased [None]
